FAERS Safety Report 5397779-1 (Version None)
Quarter: 2007Q3

REPORT INFORMATION
  Report Type: 
  Country: None (occurrence: None)
  Receive Date: 20070726
  Receipt Date: 20070718
  Transmission Date: 20080115
  Serious: Yes (Other)
  Sender: FDA-Public Use
  Company Number: B0480549A

PATIENT
  Sex: Female

DRUGS (1)
  1. CONTAC NON-DROWSY 12-HOUR RELIEF [Suspect]
     Route: 065

REACTIONS (4)
  - CHOKING [None]
  - DRUG INEFFECTIVE [None]
  - LACRIMATION INCREASED [None]
  - SNEEZING [None]
